FAERS Safety Report 25830400 (Version 2)
Quarter: 2025Q3

REPORT INFORMATION
  Report Type: Report from Study
  Country: CN (occurrence: CN)
  Receive Date: 20250922
  Receipt Date: 20250925
  Transmission Date: 20251021
  Serious: Yes (Hospitalization)
  Sender: DAIICHI
  Company Number: CN-DSJP-DS-2025-136910-CN

PATIENT
  Sex: Female
  Weight: 51 kg

DRUGS (63)
  1. ENHERTU [Suspect]
     Active Substance: FAM-TRASTUZUMAB DERUXTECAN-NXKI
     Indication: Breast cancer
     Dosage: 100 MG, ONCE EVERY 3 WK
     Route: 041
     Dates: start: 20250328, end: 20250328
  2. ENHERTU [Suspect]
     Active Substance: FAM-TRASTUZUMAB DERUXTECAN-NXKI
     Dosage: 160 MG, ONCE EVERY 3 WK
     Route: 041
     Dates: start: 20250409, end: 20250409
  3. VITAMIN C [Concomitant]
     Active Substance: ASCORBIC ACID
     Indication: Supplementation therapy
     Dosage: 3 G, SINGLE
     Route: 041
     Dates: start: 20250328, end: 20250328
  4. VITAMIN C [Concomitant]
     Active Substance: ASCORBIC ACID
     Indication: Fluid replacement
     Dosage: 3 G, SINGLE
     Route: 041
     Dates: start: 20250409, end: 20250409
  5. VITAMIN C [Concomitant]
     Active Substance: ASCORBIC ACID
     Dosage: 3 G, QD
     Route: 041
     Dates: start: 20250414, end: 20250419
  6. VITAMIN B6 [Concomitant]
     Active Substance: PYRIDOXINE HYDROCHLORIDE
     Indication: Prophylaxis
     Dosage: 200 MG, SINGLE
     Route: 041
     Dates: start: 20250328, end: 20250328
  7. VITAMIN B6 [Concomitant]
     Active Substance: PYRIDOXINE HYDROCHLORIDE
     Indication: Gastrointestinal disorder prophylaxis
     Dosage: 200 MG, QD
     Route: 041
     Dates: start: 20250409, end: 20250409
  8. VITAMIN B6 [Concomitant]
     Active Substance: PYRIDOXINE HYDROCHLORIDE
     Dosage: 200 MG, QD
     Route: 041
     Dates: start: 20250414, end: 20250419
  9. DEXAMETHASONE SODIUM PHOSPHATE [Concomitant]
     Active Substance: DEXAMETHASONE SODIUM PHOSPHATE
     Indication: Prophylaxis
     Dosage: 5 MG, BID
     Route: 041
     Dates: start: 20250320, end: 20250415
  10. DEXAMETHASONE SODIUM PHOSPHATE [Concomitant]
     Active Substance: DEXAMETHASONE SODIUM PHOSPHATE
     Indication: Allergy prophylaxis
     Dosage: 5 MG, SINGLE
     Route: 041
     Dates: start: 20250328, end: 20250328
  11. DEXAMETHASONE SODIUM PHOSPHATE [Concomitant]
     Active Substance: DEXAMETHASONE SODIUM PHOSPHATE
     Indication: Dehydration
     Dosage: 5 MG, SINGLE
     Route: 041
     Dates: start: 20250409, end: 20250409
  12. DEXAMETHASONE SODIUM PHOSPHATE [Concomitant]
     Active Substance: DEXAMETHASONE SODIUM PHOSPHATE
     Dosage: 5 MG, SINGLE
     Route: 041
     Dates: start: 20250414, end: 20250419
  13. NETUPITANT AND PALONOSETRON HYDROCHLORIDE [Concomitant]
     Indication: Prophylaxis of nausea and vomiting
     Dosage: 0.3 G, SINGLE
     Route: 048
     Dates: start: 20250328, end: 20250328
  14. NETUPITANT AND PALONOSETRON HYDROCHLORIDE [Concomitant]
     Dosage: 0.3 G, SINGLE
     Route: 048
     Dates: start: 20250409, end: 20250409
  15. OMEPRAZOLE SODIUM [Concomitant]
     Active Substance: OMEPRAZOLE SODIUM
     Indication: Gastrointestinal disorder prophylaxis
     Dosage: 40 MG, SINGLE
     Route: 041
     Dates: start: 20250328, end: 20250328
  16. OMEPRAZOLE SODIUM [Concomitant]
     Active Substance: OMEPRAZOLE SODIUM
     Dosage: 40 MG, SINGLE
     Route: 041
     Dates: start: 20250409, end: 20250409
  17. BICYCLOL [Concomitant]
     Active Substance: BICYCLOL
     Indication: Liver disorder
     Dosage: 2 DOSAGE FORM, TID
     Route: 048
     Dates: start: 20240930
  18. CALCIUM CARBONATE\CHOLECALCIFEROL [Concomitant]
     Active Substance: CALCIUM CARBONATE\CHOLECALCIFEROL
     Indication: Mineral supplementation
     Dosage: 125 IU, QD
     Route: 048
     Dates: start: 20241106
  19. COMPOUND ZAOFAN [Concomitant]
     Indication: Platelet count decreased
     Dosage: 9 DOSAGE FORM, TID
     Route: 048
     Dates: start: 20241124, end: 20250326
  20. COMPOUND ZAOFAN [Concomitant]
     Indication: Anaemia
     Dosage: 9 DOSAGE FORM, TID
     Route: 048
     Dates: start: 20250327, end: 20250330
  21. COMPOUND ZAOFAN [Concomitant]
     Dosage: 9 DOSAGE FORM, TID
     Route: 048
     Dates: start: 20240330, end: 20250405
  22. COMPOUND ZAOFAN [Concomitant]
     Dosage: 9 DOSAGE FORM, TID
     Route: 048
     Dates: start: 20240405, end: 20250407
  23. DI YU SHENG BAI [Concomitant]
     Indication: White blood cell count increased
     Dosage: 2 DOSAGE FORM, TID
     Route: 048
     Dates: start: 20241125
  24. GLUTATHIONE [Concomitant]
     Active Substance: GLUTATHIONE
     Indication: Liver disorder
     Dosage: 4 DOSAGE FORM, TID
     Route: 048
     Dates: start: 20241227
  25. MEGESTROL ACETATE [Concomitant]
     Active Substance: MEGESTROL ACETATE
     Indication: Appetite disorder
     Dosage: 1 DOSAGE FORM, QD
     Route: 048
     Dates: start: 20250124
  26. JIAN PI SHENG XUE [Concomitant]
     Indication: Anaemia
     Dosage: 3 DOSAGE FORM, TID
     Route: 048
     Dates: start: 20250204, end: 20250402
  27. JIAN PI SHENG XUE [Concomitant]
     Dosage: 3 DOSAGE FORM, TID
     Route: 048
     Dates: start: 20250405, end: 20250412
  28. JIAN PI SHENG XUE [Concomitant]
     Dosage: 3 DOSAGE FORM, TID
     Route: 048
     Dates: start: 20250415
  29. SHENG XUE NING [Concomitant]
     Indication: Anaemia
     Dosage: 2 DOSAGE FORM, TID
     Route: 048
     Dates: start: 20250301, end: 20250402
  30. SHENG XUE NING [Concomitant]
     Dosage: 2 DOSAGE FORM, TID
     Route: 048
     Dates: start: 20250405, end: 20250412
  31. SHENG XUE NING [Concomitant]
     Dosage: 2 DOSAGE FORM, TID
     Route: 048
     Dates: start: 20250415
  32. MANNITOL [Concomitant]
     Active Substance: MANNITOL
     Indication: Intracranial pressure increased
     Dosage: 25 G, ONCE EVERY 8HR
     Route: 041
     Dates: start: 20250312, end: 20250419
  33. MAGNESIUM ISOGLYCYRRHIZINATE [Concomitant]
     Active Substance: MAGNESIUM ISOGLYCYRRHIZINATE
     Indication: Liver disorder
     Dosage: 200 MG, QD
     Route: 041
     Dates: start: 20250320, end: 20250415
  34. MAGNESIUM ISOGLYCYRRHIZINATE [Concomitant]
     Active Substance: MAGNESIUM ISOGLYCYRRHIZINATE
     Indication: Intracranial pressure increased
     Dosage: 200 MG, QD
     Route: 041
     Dates: start: 20250412, end: 20250415
  35. MAGNESIUM ISOGLYCYRRHIZINATE [Concomitant]
     Active Substance: MAGNESIUM ISOGLYCYRRHIZINATE
     Dosage: 200 MG, QD
     Route: 041
     Dates: start: 20250416, end: 20250419
  36. MAGNESIUM ISOGLYCYRRHIZINATE [Concomitant]
     Active Substance: MAGNESIUM ISOGLYCYRRHIZINATE
     Dosage: 200 MG, QD
     Route: 041
     Dates: start: 20250416, end: 20250419
  37. RECOMBINANT HUMAN THROMBOPOIETIN [Concomitant]
     Active Substance: RECOMBINANT HUMAN THROMBOPOIETIN
     Indication: Platelet count decreased
     Dosage: 15000 IU/L, QD
     Route: 058
     Dates: start: 20250324, end: 20250327
  38. RECOMBINANT HUMAN THROMBOPOIETIN [Concomitant]
     Active Substance: RECOMBINANT HUMAN THROMBOPOIETIN
     Dosage: 15000 IU/L, QD
     Route: 058
     Dates: start: 20250330, end: 20250407
  39. RECOMBINANT HUMAN THROMBOPOIETIN [Concomitant]
     Active Substance: RECOMBINANT HUMAN THROMBOPOIETIN
     Dosage: 15000 IU/L, QD
     Route: 058
     Dates: start: 20250414, end: 20250419
  40. FUROSEMIDE [Concomitant]
     Active Substance: FUROSEMIDE
     Indication: Polyuria
     Dosage: 40 MG, SINGLE
     Route: 042
     Dates: start: 20250325, end: 20250325
  41. FUROSEMIDE [Concomitant]
     Active Substance: FUROSEMIDE
     Dosage: 20 MG, SINGLE
     Route: 042
     Dates: start: 20250403, end: 20250403
  42. FUROSEMIDE [Concomitant]
     Active Substance: FUROSEMIDE
     Dosage: 20 MG, SINGLE
     Route: 042
     Dates: start: 20250405, end: 20250405
  43. FUROSEMIDE [Concomitant]
     Active Substance: FUROSEMIDE
     Dosage: 40 MG, SINGLE
     Route: 042
     Dates: start: 20250409, end: 20250409
  44. FUROSEMIDE [Concomitant]
     Active Substance: FUROSEMIDE
     Dosage: 40 MG, BID
     Route: 042
     Dates: start: 20250411, end: 20250411
  45. COMBINED BACILLUS SUBTILIS AND ENTEROCOCCUS FAECIUM GRANULES WITH MULT [Concomitant]
     Indication: Abdominal discomfort
     Dosage: 1 BAG, TID
     Route: 048
     Dates: start: 20250325
  46. DENOSUMAB [Concomitant]
     Active Substance: DENOSUMAB
     Indication: Bone disorder
     Dosage: 120 MG, SINGLE
     Route: 058
     Dates: start: 20250329, end: 20250329
  47. DENOSUMAB [Concomitant]
     Active Substance: DENOSUMAB
     Indication: Prophylaxis
  48. ESTAZOLAM [Concomitant]
     Active Substance: ESTAZOLAM
     Indication: Insomnia
     Dosage: 1 MG, QD
     Route: 048
     Dates: start: 20250330
  49. CELECOXIB [Concomitant]
     Active Substance: CELECOXIB
     Indication: Back pain
     Route: 048
     Dates: start: 20250331, end: 20250331
  50. MONTMORILLONITE [Concomitant]
     Active Substance: MONTMORILLONITE
     Indication: Diarrhoea
     Dosage: 3 G (POWDER), TID
     Route: 048
     Dates: start: 20250404
  51. DICLOFENAC DIETHYLAMINE [Concomitant]
     Active Substance: DICLOFENAC DIETHYLAMINE
     Indication: Back pain
     Route: 061
     Dates: start: 20250406
  52. ALBUMIN HUMAN [Concomitant]
     Active Substance: ALBUMIN HUMAN
     Indication: Hypoalbuminaemia
     Dosage: 10 G, QD
     Route: 041
     Dates: start: 20250407, end: 20250408
  53. ALBUMIN HUMAN [Concomitant]
     Active Substance: ALBUMIN HUMAN
     Dosage: 10 G, SINGLE
     Route: 041
     Dates: start: 20250414, end: 20250419
  54. GLUTATHIONE [Concomitant]
     Active Substance: GLUTATHIONE
     Indication: Liver disorder
     Dosage: 1.8 G, QD
     Route: 041
     Dates: start: 20250412, end: 20250419
  55. TRAMADOL HYDROCHLORIDE [Concomitant]
     Active Substance: TRAMADOL HYDROCHLORIDE
     Indication: Analgesic therapy
     Route: 048
     Dates: start: 20250413
  56. AMINO ACIDS, SOURCE UNSPECIFIED [Concomitant]
     Active Substance: AMINO ACIDS, SOURCE UNSPECIFIED
     Indication: Supplementation therapy
     Dosage: 12.5 G, QD
     Route: 041
     Dates: start: 20250414, end: 20250419
  57. FAT EMULSION NOS [Concomitant]
     Active Substance: EGG PHOSPHOLIPIDS\SAFFLOWER OIL\SOYBEAN OIL
     Indication: Supplementation therapy
     Dosage: 20 G, QD
     Route: 041
     Dates: start: 20250414, end: 20250419
  58. PHENOBARBITAL SODIUM [Concomitant]
     Active Substance: PHENOBARBITAL SODIUM
     Indication: Epilepsy
     Dosage: 0.1 G, ONCE EVERY 8HR
     Route: 030
     Dates: start: 20250417, end: 20250419
  59. MUPIROCIN [Concomitant]
     Active Substance: MUPIROCIN
     Indication: Decubitus ulcer
     Route: 061
     Dates: start: 20250409
  60. SODIUM BICARBONATE [Concomitant]
     Active Substance: SODIUM BICARBONATE
     Indication: Mouth ulceration
     Route: 050
     Dates: start: 20250410, end: 20250410
  61. SODIUM BICARBONATE [Concomitant]
     Active Substance: SODIUM BICARBONATE
     Route: 050
     Dates: start: 20250415, end: 20250415
  62. PROMETHAZINE HYDROCHLORIDE [Concomitant]
     Active Substance: PROMETHAZINE HYDROCHLORIDE
     Indication: Prophylaxis
     Dosage: 25 MG, SINGLE
     Route: 030
     Dates: start: 20250416, end: 20250416
  63. PROMETHAZINE HYDROCHLORIDE [Concomitant]
     Active Substance: PROMETHAZINE HYDROCHLORIDE
     Indication: Allergic transfusion reaction

REACTIONS (7)
  - Platelet count decreased [Not Recovered/Not Resolved]
  - Decreased appetite [Not Recovered/Not Resolved]
  - Oral pain [Not Recovered/Not Resolved]
  - Anaemia [Not Recovered/Not Resolved]
  - Neutrophil count decreased [Not Recovered/Not Resolved]
  - Blood creatinine increased [Not Recovered/Not Resolved]
  - White blood cell count decreased [Not Recovered/Not Resolved]

NARRATIVE: CASE EVENT DATE: 20250415
